FAERS Safety Report 17896587 (Version 2)
Quarter: 2021Q3

REPORT INFORMATION
  Report Type: Spontaneous
  Country: US (occurrence: US)
  Receive Date: 20200615
  Receipt Date: 20210818
  Transmission Date: 20211014
  Serious: Yes (Other)
  Sender: FDA-Public Use
  Company Number: US-SA-2020SA152673

PATIENT
  Age: 31 Year
  Sex: Female

DRUGS (1)
  1. ZANTAC [Suspect]
     Active Substance: RANITIDINE HYDROCHLORIDE
     Indication: DYSPEPSIA
     Dosage: UNK, QD
     Route: 065
     Dates: start: 200403, end: 201801

REACTIONS (3)
  - Lung carcinoma cell type unspecified stage III [Unknown]
  - Breast cancer stage III [Unknown]
  - Hepatic cancer stage III [Unknown]

NARRATIVE: CASE EVENT DATE: 20080101
